FAERS Safety Report 17375316 (Version 1)
Quarter: 2020Q1

REPORT INFORMATION
  Report Type: Spontaneous
  Country: CH (occurrence: CH)
  Receive Date: 20200206
  Receipt Date: 20200206
  Transmission Date: 20200409
  Serious: Yes (Death)
  Sender: FDA-Public Use
  Company Number: CH-ROCHE-2537377

PATIENT
  Age: 22 Year
  Sex: Female
  Weight: 44 kg

DRUGS (22)
  1. TAMIFLU [Suspect]
     Active Substance: OSELTAMIVIR PHOSPHATE
     Indication: COUGH
  2. PARACETAMOL [Suspect]
     Active Substance: ACETAMINOPHEN
     Indication: VOMITING
  3. TAMIFLU [Suspect]
     Active Substance: OSELTAMIVIR PHOSPHATE
     Indication: PYREXIA
     Route: 048
     Dates: start: 20200106
  4. MOTILIUM [Suspect]
     Active Substance: DOMPERIDONE
     Indication: PYREXIA
     Route: 048
     Dates: start: 20200106, end: 20200106
  5. MOTILIUM [Suspect]
     Active Substance: DOMPERIDONE
     Indication: OROPHARYNGEAL PAIN
  6. TAMIFLU [Suspect]
     Active Substance: OSELTAMIVIR PHOSPHATE
     Indication: VOMITING
  7. NOVALGIN (METAMIZOLE SODIUM) [Concomitant]
     Active Substance: METAMIZOLE SODIUM
     Route: 048
     Dates: start: 20200103, end: 20200106
  8. PARACETAMOL [Suspect]
     Active Substance: ACETAMINOPHEN
     Indication: COUGH
  9. VICKS DAYQUIL [Suspect]
     Active Substance: DEXTROMETHORPHAN HYDROBROMIDE\GUAIFENESIN
     Indication: PYREXIA
     Route: 048
  10. VICKS DAYQUIL [Suspect]
     Active Substance: DEXTROMETHORPHAN HYDROBROMIDE\GUAIFENESIN
     Indication: OROPHARYNGEAL PAIN
  11. IRFEN [Suspect]
     Active Substance: IBUPROFEN
     Indication: COUGH
     Route: 048
     Dates: start: 20200103, end: 20200106
  12. MOTILIUM [Suspect]
     Active Substance: DOMPERIDONE
     Indication: COUGH
     Route: 048
     Dates: start: 20200103, end: 20200106
  13. MOTILIUM [Suspect]
     Active Substance: DOMPERIDONE
     Indication: VOMITING
  14. TAMIFLU [Suspect]
     Active Substance: OSELTAMIVIR PHOSPHATE
     Indication: OROPHARYNGEAL PAIN
  15. PARACETAMOL [Suspect]
     Active Substance: ACETAMINOPHEN
     Indication: PYREXIA
     Route: 048
     Dates: start: 20200103, end: 20200106
  16. VICKS DAYQUIL [Suspect]
     Active Substance: DEXTROMETHORPHAN HYDROBROMIDE\GUAIFENESIN
     Indication: COUGH
  17. IRFEN [Suspect]
     Active Substance: IBUPROFEN
     Indication: PYREXIA
     Route: 048
     Dates: start: 20200106
  18. IRFEN [Suspect]
     Active Substance: IBUPROFEN
     Indication: VOMITING
  19. PARACETAMOL [Suspect]
     Active Substance: ACETAMINOPHEN
     Indication: OROPHARYNGEAL PAIN
     Route: 048
     Dates: start: 20200106, end: 20200106
  20. VICKS DAYQUIL [Suspect]
     Active Substance: DEXTROMETHORPHAN HYDROBROMIDE\GUAIFENESIN
     Indication: VOMITING
  21. IRFEN [Suspect]
     Active Substance: IBUPROFEN
     Indication: OROPHARYNGEAL PAIN
  22. YAZ [Concomitant]
     Active Substance: DROSPIRENONE\ETHINYL ESTRADIOL
     Route: 048

REACTIONS (1)
  - Acute hepatic failure [Fatal]

NARRATIVE: CASE EVENT DATE: 20200107
